FAERS Safety Report 8980131 (Version 1)
Quarter: 2012Q4

REPORT INFORMATION
  Report Type: 
  Country: JP (occurrence: JP)
  Receive Date: 20121221
  Receipt Date: 20121221
  Transmission Date: 20130627
  Serious: Yes (Other)
  Sender: FDA-Public Use
  Company Number: PHHY2012JP116892

PATIENT
  Age: 60 Year
  Sex: Female

DRUGS (1)
  1. NEORAL [Suspect]
     Indication: DERMATOMYOSITIS
     Route: 048

REACTIONS (1)
  - Myelitis [Unknown]
